FAERS Safety Report 24955044 (Version 4)
Quarter: 2025Q4

REPORT INFORMATION
  Report Type: Spontaneous
  Country: US (occurrence: US)
  Receive Date: 20250211
  Receipt Date: 20251027
  Transmission Date: 20260118
  Serious: No
  Sender: PFIZER
  Company Number: US-PFIZER INC-202500023492

PATIENT
  Age: 85 Year
  Sex: Female
  Weight: 116.1 kg

DRUGS (1)
  1. IBRANCE [Suspect]
     Active Substance: PALBOCICLIB
     Indication: Breast cancer female
     Dosage: 125 MG, CYCLIC (ONCE DAILY FOR 21 DAYS. REPEAT EVERY 28 DAYS)
     Route: 048
     Dates: start: 20241010

REACTIONS (3)
  - Cough [Unknown]
  - Eye disorder [Unknown]
  - Constipation [Unknown]
